FAERS Safety Report 4898141-8 (Version None)
Quarter: 2006Q1

REPORT INFORMATION
  Report Type: 
  Country: None (occurrence: None)
  Receive Date: 20060201
  Receipt Date: 20051231
  Transmission Date: 20060701
  Serious: Yes (Life-Threatening, Hospitalization, Other)
  Sender: FDA-Public Use
  Company Number: JP-ABBOTT-06P-087-0321034-00

PATIENT
  Sex: Female

DRUGS (7)
  1. CLARITHROMYCIN [Suspect]
     Indication: DRUG USE FOR UNKNOWN INDICATION
     Dates: start: 20051201, end: 20051207
  2. CLARITHROMYCIN [Suspect]
     Indication: HELICOBACTER INFECTION
     Route: 048
     Dates: start: 20051202, end: 20051209
  3. LANSOPRAZOLE [Suspect]
     Indication: HELICOBACTER INFECTION
     Route: 048
     Dates: start: 20051202, end: 20051209
  4. AMOXICILLIN [Suspect]
     Indication: HELICOBACTER INFECTION
     Route: 048
     Dates: start: 20051202, end: 20051209
  5. NILVADIPINE [Concomitant]
     Indication: HYPERTENSION
     Route: 048
     Dates: start: 19921020
  6. MILNACIPRAN HYDROCHLORIDE [Concomitant]
     Indication: DEPRESSION
     Route: 048
     Dates: start: 20020520
  7. ATORVASTATIN CALCIUM [Concomitant]
     Indication: HYPERLIPIDAEMIA
     Route: 048
     Dates: start: 20030307

REACTIONS (6)
  - CONJUNCTIVITIS [None]
  - DRUG ERUPTION [None]
  - INFREQUENT BOWEL MOVEMENTS [None]
  - RASH [None]
  - STEVENS-JOHNSON SYNDROME [None]
  - STOMATITIS [None]
